FAERS Safety Report 25254853 (Version 2)
Quarter: 2025Q2

REPORT INFORMATION
  Report Type: Other
  Country: DE (occurrence: DE)
  Receive Date: 20250430
  Receipt Date: 20250506
  Transmission Date: 20250717
  Serious: No
  Sender: NOVARTIS
  Company Number: DE-002147023-NVSC2025DE069273

PATIENT
  Age: 32 Year
  Sex: Female

DRUGS (1)
  1. MEKINIST [Suspect]
     Active Substance: TRAMETINIB DIMETHYL SULFOXIDE
     Indication: Product used for unknown indication
     Route: 048
     Dates: start: 202503

REACTIONS (1)
  - No adverse event [Unknown]
